FAERS Safety Report 8492660-3 (Version None)
Quarter: 2012Q2

REPORT INFORMATION
  Report Type: 
  Country: None (occurrence: None)
  Receive Date: 20120627
  Receipt Date: 20120523
  Transmission Date: 20120825
  Serious: Yes (Other)
  Sender: FDA-Public Use
  Company Number: 2012AA000558

PATIENT
  Age: 52 Year
  Sex: Male

DRUGS (1)
  1. PHARMALGEN APIS MELLIFERA (PHARMALGEN APIS MELLIFERA) [Suspect]
     Indication: HYPERSENSITIVITY
     Dosage: 40 MICROGRAMS, WEEKLY, SUBCUTANEOUS
     Route: 058
     Dates: start: 20021211

REACTIONS (2)
  - ANAPHYLACTIC REACTION [None]
  - URTICARIA [None]
